FAERS Safety Report 12819856 (Version 1)
Quarter: 2016Q4

REPORT INFORMATION
  Report Type: Report from Study
  Country: US (occurrence: US)
  Receive Date: 20161006
  Receipt Date: 20161006
  Transmission Date: 20170207
  Serious: No
  Sender: FDA-Public Use
  Company Number: US-AMGEN-USASL2015107048

PATIENT
  Age: 56 Year
  Sex: Female

DRUGS (1)
  1. PROLIA [Suspect]
     Active Substance: DENOSUMAB
     Indication: OSTEOPOROSIS
     Dosage: UNK UNK, Q6MO
     Route: 065
     Dates: end: 20141218

REACTIONS (6)
  - Decreased immune responsiveness [Unknown]
  - Malaise [Unknown]
  - Joint crepitation [Unknown]
  - Fall [Unknown]
  - Conjunctivitis [Unknown]
  - Jaw disorder [Unknown]

NARRATIVE: CASE EVENT DATE: 201510
